FAERS Safety Report 8458694-X (Version None)
Quarter: 2012Q2

REPORT INFORMATION
  Report Type: 
  Country: None (occurrence: None)
  Receive Date: 20120615
  Receipt Date: 20120604
  Transmission Date: 20120825
  Serious: Yes (Hospitalization)
  Sender: FDA-Public Use
  Company Number: 1307500

PATIENT
  Age: 68 Year
  Sex: Female
  Weight: 60 kg

DRUGS (2)
  1. KENALOG [Concomitant]
  2. BUPIVACAINE HCL [Suspect]
     Indication: INJECTION
     Dosage: 3 CC, ONCE, INJECTION ON LEFT KNEE
     Dates: start: 20120523, end: 20120523

REACTIONS (6)
  - SYNOVIAL CYST [None]
  - WRONG TECHNIQUE IN DRUG USAGE PROCESS [None]
  - TRANSMISSION OF AN INFECTIOUS AGENT VIA A MEDICINAL PRODUCT [None]
  - POST PROCEDURAL INFECTION [None]
  - IMMUNE SYSTEM DISORDER [None]
  - SERRATIA INFECTION [None]
